FAERS Safety Report 5065804-3 (Version None)
Quarter: 2006Q3

REPORT INFORMATION
  Report Type: 
  Country: None (occurrence: None)
  Receive Date: 20060731
  Receipt Date: 20060725
  Transmission Date: 20061208
  Serious: Yes (Disabling)
  Sender: FDA-Public Use
  Company Number: GB-GLAXOSMITHKLINE-B0432053A

PATIENT
  Age: 38 Year
  Sex: Female

DRUGS (1)
  1. NIQUITIN CQ 21MG [Suspect]
     Dosage: 21MG PER DAY
     Route: 062
     Dates: start: 20060610, end: 20060610

REACTIONS (4)
  - COLD SWEAT [None]
  - DIZZINESS [None]
  - FEELING HOT [None]
  - VOMITING [None]
